FAERS Safety Report 8992049 (Version 1)
Quarter: 2012Q4

REPORT INFORMATION
  Report Type: 
  Country: IT (occurrence: IT)
  Receive Date: 20121231
  Receipt Date: 20121231
  Transmission Date: 20130627
  Serious: Yes (Other)
  Sender: FDA-Public Use
  Company Number: IT-PFIZER INC-2012322566

PATIENT
  Age: 63 Year
  Sex: Male

DRUGS (1)
  1. TRIATEC [Suspect]
     Indication: HYPERTENSION ARTERIAL
     Dosage: 5 mg, daily
     Route: 048
     Dates: start: 20020101

REACTIONS (2)
  - Hypertensive crisis [Recovering/Resolving]
  - Epistaxis [Recovering/Resolving]
